FAERS Safety Report 11016198 (Version 2)
Quarter: 2015Q2

REPORT INFORMATION
  Report Type: Spontaneous
  Country: US (occurrence: US)
  Receive Date: 20150412
  Receipt Date: 20150525
  Transmission Date: 20150821
  Serious: No
  Sender: FDA-Public Use
  Company Number: US-JNJFOC-20130806505

PATIENT
  Age: 48 Year
  Sex: Male
  Weight: 83.92 kg

DRUGS (2)
  1. SIMPONI [Suspect]
     Active Substance: GOLIMUMAB
     Indication: COLITIS ULCERATIVE
     Dosage: 100MG + 100MG
     Route: 058
     Dates: start: 20130812
  2. METHOTREXATE [Concomitant]
     Active Substance: METHOTREXATE
     Indication: COLITIS ULCERATIVE
     Dosage: WEEKLY
     Route: 058
     Dates: start: 2013

REACTIONS (4)
  - Injection site bruising [Not Recovered/Not Resolved]
  - Injection site reaction [Recovered/Resolved]
  - Needle issue [Unknown]
  - Wrong technique in drug usage process [Recovered/Resolved]

NARRATIVE: CASE EVENT DATE: 20130812
